FAERS Safety Report 8015560-1 (Version None)
Quarter: 2011Q4

REPORT INFORMATION
  Report Type: 
  Country: None (occurrence: None)
  Receive Date: 20111230
  Receipt Date: 20110919
  Transmission Date: 20120403
  Serious: Yes (Life-Threatening, Hospitalization, Disabling)
  Sender: FDA-Public Use
  Company Number: US-BAYER-201026161NA

PATIENT
  Age: 43 Year
  Sex: Female
  Weight: 104 kg

DRUGS (11)
  1. ADVAIR DISKUS 100/50 [Concomitant]
     Indication: ASTHMA
  2. AFRIN ALLERGY [Concomitant]
     Dosage: UNK
     Route: 045
     Dates: start: 20060701
  3. SEROQUEL [Concomitant]
     Indication: BIPOLAR DISORDER
     Dosage: 25 MG, BID
     Dates: start: 20060301
  4. ALBUTEROL INHALER [Concomitant]
     Indication: ASTHMA
     Dosage: UNK
     Route: 055
     Dates: start: 20060601
  5. ABILIFY [Concomitant]
     Dosage: UNK
     Dates: start: 20060101
  6. LAMICTAL [Concomitant]
     Dosage: 25 MG, BID
     Route: 048
     Dates: start: 20061113
  7. XALATAN [Concomitant]
  8. NEXIUM [Concomitant]
     Indication: GASTROOESOPHAGEAL REFLUX DISEASE
     Dosage: 1 NOT APPL., QD
     Route: 048
     Dates: start: 20061113
  9. NAPROXEN [Concomitant]
     Indication: PAIN
     Dosage: 550 MG, UNK
     Route: 048
     Dates: start: 20060705
  10. YAZ [Suspect]
     Indication: GENITAL HAEMORRHAGE
     Route: 048
     Dates: start: 20061212
  11. LITHIUM [Concomitant]
     Dosage: UNK UNK, BID
     Dates: start: 20061113

REACTIONS (43)
  - HYPERCOAGULATION [None]
  - DEVICE OCCLUSION [None]
  - URGE INCONTINENCE [None]
  - CEREBROVASCULAR ACCIDENT [None]
  - DIZZINESS [None]
  - LACERATION [None]
  - PROTEIN C DEFICIENCY [None]
  - CEREBRAL INFARCTION [None]
  - HYDROCEPHALUS [None]
  - POLLAKIURIA [None]
  - VASCULITIS [None]
  - PULSE ABSENT [None]
  - VAGINAL HAEMORRHAGE [None]
  - FALL [None]
  - ACUTE RESPIRATORY FAILURE [None]
  - HAEMORRHAGIC TRANSFORMATION STROKE [None]
  - PRODUCT SUBSTITUTION ISSUE [None]
  - DECUBITUS ULCER [None]
  - ARTERIAL THROMBOSIS LIMB [None]
  - HEADACHE [None]
  - MUSCULAR WEAKNESS [None]
  - PAIN IN EXTREMITY [None]
  - HAND AMPUTATION [None]
  - GLAUCOMA [None]
  - SEDATION [None]
  - COMA [None]
  - GRAND MAL CONVULSION [None]
  - CAROTID ARTERY THROMBOSIS [None]
  - PERIPHERAL ISCHAEMIA [None]
  - EMBOLIC STROKE [None]
  - ENCEPHALOMALACIA [None]
  - NOCTURIA [None]
  - DEEP VEIN THROMBOSIS [None]
  - SLEEP APNOEA SYNDROME [None]
  - HEMIPARESIS [None]
  - RESPIRATORY FAILURE [None]
  - CENTRAL NERVOUS SYSTEM INFECTION [None]
  - INFLUENZA [None]
  - MUSCLE SPASTICITY [None]
  - CAROTID ARTERY OCCLUSION [None]
  - COMPLEX PARTIAL SEIZURES [None]
  - NO THERAPEUTIC RESPONSE [None]
  - BACTERAEMIA [None]
